FAERS Safety Report 8148727-2 (Version None)
Quarter: 2012Q1

REPORT INFORMATION
  Report Type: 
  Country: None (occurrence: None)
  Receive Date: 20120218
  Receipt Date: 20110801
  Transmission Date: 20120608
  Serious: No
  Sender: FDA-Public Use
  Company Number: US-ALLERGAN-1108501US

PATIENT
  Age: 65 Year
  Sex: Female
  Weight: 53.515 kg

DRUGS (2)
  1. BOTOX COSMETIC [Suspect]
     Indication: SKIN WRINKLING
     Dosage: UNK
     Dates: start: 20100929, end: 20100929
  2. BOTOX COSMETIC [Suspect]
     Dosage: UNK
     Dates: start: 20101026, end: 20101026

REACTIONS (1)
  - ASTHMA [None]
